FAERS Safety Report 16256724 (Version 7)
Quarter: 2024Q4

REPORT INFORMATION
  Report Type: Report from Study
  Country: CA (occurrence: CA)
  Receive Date: 20190430
  Receipt Date: 20241223
  Transmission Date: 20250115
  Serious: Yes (Hospitalization, Other)
  Sender: NOVARTIS
  Company Number: PHHY2019CA091477

PATIENT
  Age: 43 Year
  Sex: Female

DRUGS (3)
  1. GILENYA [Suspect]
     Active Substance: FINGOLIMOD HYDROCHLORIDE
     Indication: Secondary progressive multiple sclerosis
     Dosage: 0.5 MG
     Route: 048
     Dates: start: 2006, end: 20201130
  2. GILENYA [Suspect]
     Active Substance: FINGOLIMOD HYDROCHLORIDE
     Indication: Relapsing-remitting multiple sclerosis
  3. REBIF [Concomitant]
     Active Substance: INTERFERON BETA-1A
     Indication: Drug intolerance
     Dosage: UNK
     Route: 065
     Dates: start: 2005, end: 2005

REACTIONS (8)
  - Progressive multifocal leukoencephalopathy [Unknown]
  - Expanded disability status scale score increased [Unknown]
  - Lymphocyte count decreased [Unknown]
  - Aphasia [Unknown]
  - Memory impairment [Unknown]
  - Therapeutic response decreased [Unknown]
  - Drug ineffective [Unknown]
  - Product use in unapproved indication [Unknown]
